FAERS Safety Report 9286232 (Version 2)
Quarter: 2013Q2

REPORT INFORMATION
  Report Type: Report from Study
  Country: US (occurrence: US)
  Receive Date: 20130513
  Receipt Date: 20130521
  Transmission Date: 20140414
  Serious: Yes (Hospitalization, Other)
  Sender: FDA-Public Use
  Company Number: PHEH2013US008842

PATIENT
  Age: 67 Year
  Sex: Male

DRUGS (6)
  1. TASIGNA [Suspect]
     Indication: CHRONIC MYELOID LEUKAEMIA
     Dosage: 300 MG, BID
     Route: 048
     Dates: start: 201104
  2. JANUVIA [Suspect]
  3. PROPECIA [Concomitant]
     Dosage: 1 MG/DAY
  4. ADVAIR [Concomitant]
     Dosage: 50/200 MG
  5. OMEPRAZOLE [Concomitant]
     Dosage: 40 MG/DAY
  6. CRESTOR [Concomitant]
     Dosage: 10 MG/DAY

REACTIONS (6)
  - Pancreatitis acute [Recovered/Resolved]
  - Abdominal distension [Unknown]
  - Abdominal tenderness [Unknown]
  - Abdominal pain upper [Unknown]
  - Diarrhoea [Unknown]
  - Drug interaction [Unknown]
